FAERS Safety Report 9543750 (Version 1)
Quarter: 2013Q3

REPORT INFORMATION
  Report Type: Spontaneous
  Country: AU (occurrence: AU)
  Receive Date: 20130923
  Receipt Date: 20130923
  Transmission Date: 20140515
  Serious: Yes (Other)
  Sender: FDA-Public Use
  Company Number: AU-BAXTER-2013BAX036261

PATIENT
  Age: 28 Year
  Sex: Male

DRUGS (6)
  1. 10% OSMITROL MANNITOL 100G_L INJECTION BAG AHB3026 1000ML [Suspect]
     Indication: POLYURIA
  2. 10% OSMITROL MANNITOL 100G_L INJECTION BAG AHB3026 1000ML [Suspect]
  3. BAXTER 0.9% SODIUM CHLORIDE AND 5% GLUCOSE AHB1064 1000ML INJECTION BP [Suspect]
     Indication: DEHYDRATION
  4. BAXTER 0.9% SODIUM CHLORIDE 9G_L INJECTION BP BAG AHB1324 [Suspect]
     Indication: PRODUCT USED FOR UNKNOWN INDICATION
  5. BAXTER WATER FOR INJECTIONS 1000ML INJECTION BP BAG AHB0304 [Suspect]
     Indication: PRODUCT USED FOR UNKNOWN INDICATION
  6. CISPLATIN [Concomitant]
     Indication: PRODUCT USED FOR UNKNOWN INDICATION

REACTIONS (2)
  - Testicular malignant teratoma [Unknown]
  - Type I hypersensitivity [Recovered/Resolved]
